FAERS Safety Report 5066800-2 (Version None)
Quarter: 2006Q3

REPORT INFORMATION
  Report Type: 
  Country: None (occurrence: None)
  Receive Date: 20060726
  Receipt Date: 20060627
  Transmission Date: 20061208
  Serious: Yes (Other)
  Sender: FDA-Public Use
  Company Number: 2006053698

PATIENT
  Age: 50 Year
  Sex: Male

DRUGS (2)
  1. LIPITOR [Suspect]
     Indication: HYPERLIPIDAEMIA
     Dosage: 10 MG (1 IN 1 D), ORAL
     Route: 048
     Dates: start: 20051008, end: 20060403
  2. EPINASTINE HYDROCHLORIDE (EPINASTINE HYDROCHLORIDE) [Suspect]
     Indication: HYPERSENSITIVITY
     Dosage: 20 MG (20 MG, 1 IN 1 D), ORAL
     Route: 048
     Dates: start: 20050907

REACTIONS (4)
  - BLOOD CREATINE PHOSPHOKINASE INCREASED [None]
  - HYPERAMYLASAEMIA [None]
  - PANCREATOLITHIASIS [None]
  - WHITE BLOOD CELL COUNT INCREASED [None]
